FAERS Safety Report 23538538 (Version 2)
Quarter: 2024Q1

REPORT INFORMATION
  Report Type: Spontaneous
  Country: US (occurrence: US)
  Receive Date: 20240219
  Receipt Date: 20240227
  Transmission Date: 20240410
  Serious: No
  Sender: FDA-Public Use
  Company Number: US-SA-SAC20240212000610

PATIENT
  Sex: Female
  Weight: 59.42 kg

DRUGS (3)
  1. DUPIXENT [Suspect]
     Active Substance: DUPILUMAB
     Indication: Dermatitis atopic
     Dosage: 300 MG, QOW
     Route: 058
  2. IBUPROFEN [Concomitant]
     Active Substance: IBUPROFEN
  3. SELENIUM SULFIDE [Concomitant]
     Active Substance: SELENIUM SULFIDE

REACTIONS (2)
  - Scratch [Unknown]
  - Rash [Not Recovered/Not Resolved]
